FAERS Safety Report 23565114 (Version 2)
Quarter: 2024Q3

REPORT INFORMATION
  Report Type: Spontaneous
  Country: CN (occurrence: CN)
  Receive Date: 20240226
  Receipt Date: 20240924
  Transmission Date: 20241016
  Serious: Yes (Death, Other)
  Sender: PFIZER
  Company Number: CN-PFIZER INC-PV202400024198

PATIENT
  Age: 57 Year
  Sex: Male
  Weight: 65 kg

DRUGS (2)
  1. AXITINIB [Suspect]
     Active Substance: AXITINIB
     Indication: Targeted cancer therapy
     Dosage: 5 MG, 2X/DAY
     Route: 048
     Dates: start: 20230228, end: 20230321
  2. SERPLULIMAB [Suspect]
     Active Substance: SERPLULIMAB
     Indication: Therapeutic procedure
     Dosage: 300 MG, ONCE EVERY 3 WEEKS
     Route: 041
     Dates: start: 20230228, end: 20230321

REACTIONS (3)
  - Multiple organ dysfunction syndrome [Fatal]
  - Immune-mediated myocarditis [Unknown]
  - Rhabdomyolysis [Unknown]

NARRATIVE: CASE EVENT DATE: 20230321
